FAERS Safety Report 20720851 (Version 1)
Quarter: 2022Q2

REPORT INFORMATION
  Report Type: Report from Study
  Country: US (occurrence: US)
  Receive Date: 20220418
  Receipt Date: 20220418
  Transmission Date: 20220721
  Serious: Yes (Death, Other)
  Sender: FDA-Public Use
  Company Number: US-PFIZER INC-202200573420

PATIENT

DRUGS (2)
  1. EXEMESTANE [Suspect]
     Active Substance: EXEMESTANE
     Indication: Breast cancer
     Dosage: 1X/DAY (28-DAY CYCLE)
     Route: 048
  2. ENTINOSTAT [Suspect]
     Active Substance: ENTINOSTAT
     Indication: Breast cancer
     Dosage: ONCE EVERY WEEK, (28-DAY CYCLE)
     Route: 048

REACTIONS (1)
  - Pneumonitis [Fatal]
